FAERS Safety Report 12059641 (Version 1)
Quarter: 2016Q1

REPORT INFORMATION
  Report Type: Spontaneous
  Country: US (occurrence: US)
  Receive Date: 20160210
  Receipt Date: 20160210
  Transmission Date: 20160526
  Serious: Yes (Other)
  Sender: FDA-Public Use
  Company Number: PHEH2016US002977

PATIENT
  Age: 69 Year
  Sex: Female
  Weight: 60.41 kg

DRUGS (2)
  1. INLYTA [Suspect]
     Active Substance: AXITINIB
     Indication: RENAL CELL CARCINOMA
     Dosage: 5 MG, BID (30 DAY SUPPY)
     Route: 065
  2. ZOMETA [Suspect]
     Active Substance: ZOLEDRONIC ACID
     Indication: METASTASES TO BONE
     Route: 065

REACTIONS (20)
  - Renal cell carcinoma [Unknown]
  - Headache [Unknown]
  - Tenderness [Unknown]
  - Pain in extremity [Recovering/Resolving]
  - Peripheral swelling [Recovering/Resolving]
  - Osteolysis [Unknown]
  - Dry skin [Unknown]
  - Subdural haematoma [Unknown]
  - Metastases to adrenals [Unknown]
  - Malignant neoplasm progression [Unknown]
  - Visual impairment [Unknown]
  - Pathological fracture [Unknown]
  - Adrenal mass [Unknown]
  - Tumour invasion [Unknown]
  - Fatigue [Unknown]
  - Cerebrovascular accident [Unknown]
  - Musculoskeletal pain [Unknown]
  - Humerus fracture [Recovering/Resolving]
  - Hepatic cyst [Unknown]
  - Skin warm [Unknown]

NARRATIVE: CASE EVENT DATE: 201311
